FAERS Safety Report 5730378-8 (Version None)
Quarter: 2008Q2

REPORT INFORMATION
  Report Type: 
  Country: None (occurrence: None)
  Receive Date: 20080502
  Receipt Date: 20080428
  Transmission Date: 20081010
  Serious: Yes (Death, Hospitalization)
  Sender: FDA-Public Use
  Company Number: 2008SP007642

PATIENT
  Age: 63 Year
  Sex: Female
  Weight: 55 kg

DRUGS (8)
  1. PEG-INTRON [Suspect]
     Indication: HEPATITIS C
     Dosage: 80 MCG; QW
     Dates: start: 20070725, end: 20080211
  2. RIBAVIRIN [Suspect]
     Indication: HEPATITIS C
     Dosage: 750 MG; QD
     Dates: start: 20070725, end: 20080211
  3. METFORMIN HCL [Concomitant]
  4. GLYBURIDE [Concomitant]
  5. LOSARTAN POTASSIUM [Concomitant]
  6. HYDROCHLOROTHIAZIDE [Concomitant]
  7. ATENOLOL [Concomitant]
  8. FOLIC ACID [Concomitant]

REACTIONS (6)
  - ANAEMIA [None]
  - CONDITION AGGRAVATED [None]
  - DIABETES MELLITUS [None]
  - HYPOGLYCAEMIA [None]
  - HYPOTENSION [None]
  - THROMBOCYTOPENIA [None]
